FAERS Safety Report 4705712-8 (Version None)
Quarter: 2005Q2

REPORT INFORMATION
  Report Type: 
  Country: None (occurrence: None)
  Receive Date: 20050629
  Receipt Date: 20050621
  Transmission Date: 20051028
  Serious: Yes (Hospitalization, Other)
  Sender: FDA-Public Use
  Company Number: 2005084949

PATIENT
  Age: 73 Year
  Sex: Male

DRUGS (10)
  1. UNASYN [Suspect]
     Indication: BRONCHOPNEUMONIA
     Dosage: 6 GRAM (3 GRAM, BID), INTRAVENOUS
     Route: 042
     Dates: start: 20041128, end: 20050604
  2. CLINDAMYCIN PHOSPHATE [Suspect]
     Indication: BRONCHOPNEUMONIA
     Dosage: 1200 MG(600 MG, BID), INTRAVENOUS
     Route: 042
     Dates: start: 20050603, end: 20050604
  3. MUCOSOLVAN (AMBROXOL HYDROCHLORIDE) [Concomitant]
  4. MAGNESIUM OXIDE (MAGNESSIUM OXIDE) [Concomitant]
  5. MUCODYNE (L-CARBOCISTEINE) [Concomitant]
  6. VOLTAREN SUPPO (DICLOFENAC SODIUM) [Concomitant]
  7. ARICEPT [Concomitant]
  8. MAGNESIUM SULFAT (MAGNESIUM SULFATE) [Concomitant]
  9. HANGE-KOBOKU-TO (CHINESE HERBAL MEDICINE) (HERBAL PREPARATION INGREDIE [Concomitant]
  10. CLARITHROMYCIN [Concomitant]

REACTIONS (4)
  - ASPIRATION [None]
  - HAEMOPTYSIS [None]
  - INTERSTITIAL LUNG DISEASE [None]
  - PULMONARY ALVEOLAR HAEMORRHAGE [None]
